FAERS Safety Report 5038736-4 (Version None)
Quarter: 2006Q2

REPORT INFORMATION
  Report Type: 
  Country: None (occurrence: None)
  Receive Date: 20060601
  Receipt Date: 20060103
  Transmission Date: 20061013
  Serious: No
  Sender: FDA-Public Use
  Company Number: 2006PV006530

PATIENT
  Age: 70 Year
  Sex: Male
  Weight: 88.905 kg

DRUGS (11)
  1. BYETTA [Suspect]
     Indication: DIABETES MELLITUS NON-INSULIN-DEPENDENT
     Dosage: SEE IMAGE
     Route: 058
     Dates: start: 20051125, end: 20051222
  2. BYETTA [Suspect]
     Indication: DIABETES MELLITUS NON-INSULIN-DEPENDENT
     Dosage: SEE IMAGE
     Route: 058
     Dates: start: 20051222, end: 20060102
  3. BYETTA [Suspect]
     Indication: DIABETES MELLITUS NON-INSULIN-DEPENDENT
     Dosage: SEE IMAGE
     Route: 058
     Dates: start: 20060105
  4. SOMA [Suspect]
     Indication: BACK PAIN
     Dosage: PRN;PO
     Route: 048
     Dates: start: 20051201, end: 20051204
  5. ACTOS [Concomitant]
  6. VYTORIN [Concomitant]
  7. GLUCOTROL [Concomitant]
  8. FLOMAX [Concomitant]
  9. LUNESTA [Concomitant]
  10. DICLOFENAC [Concomitant]
  11. VICODIN [Concomitant]

REACTIONS (10)
  - BLOOD GLUCOSE DECREASED [None]
  - DECREASED APPETITE [None]
  - DYSPEPSIA [None]
  - FEELING ABNORMAL [None]
  - HAEMATOCHEZIA [None]
  - HEADACHE [None]
  - HYPERHIDROSIS [None]
  - MUSCLE STRAIN [None]
  - NAUSEA [None]
  - WEIGHT DECREASED [None]
